FAERS Safety Report 4316041-9 (Version None)
Quarter: 2004Q1

REPORT INFORMATION
  Report Type: 
  Country: None (occurrence: None)
  Receive Date: 20040312
  Receipt Date: 20040204
  Transmission Date: 20041129
  Serious: Yes (Death, Hospitalization)
  Sender: FDA-Public Use
  Company Number: 200410374EU

PATIENT
  Age: 69 Year
  Sex: Male
  Weight: 86 kg

DRUGS (12)
  1. DOCETAXEL [Suspect]
     Indication: LUNG NEOPLASM MALIGNANT
     Route: 042
     Dates: start: 20031210, end: 20040128
  2. GEMCITABINE [Suspect]
     Indication: LUNG NEOPLASM MALIGNANT
     Route: 042
     Dates: start: 20031210, end: 20040128
  3. OMEPRAZOLE [Concomitant]
     Indication: PROPHYLAXIS
     Route: 048
     Dates: start: 20031125
  4. PREDNISONE [Concomitant]
     Route: 048
     Dates: start: 20031125
  5. COROPRES [Concomitant]
     Route: 048
     Dates: start: 20031125
  6. ISCOVER [Concomitant]
     Route: 048
     Dates: start: 20031125
  7. CLORAZEPATE DIPOTASSIUM [Concomitant]
     Route: 048
     Dates: start: 20031125
  8. CORDIPLAST [Concomitant]
     Dates: start: 20031125
  9. DEXAMETHASONE [Concomitant]
     Indication: PROPHYLAXIS
     Route: 048
     Dates: start: 20040120, end: 20040128
  10. KYTRIL [Concomitant]
     Indication: PROPHYLAXIS
     Route: 042
     Dates: start: 20040121, end: 20040128
  11. ADIRO [Concomitant]
     Route: 048
     Dates: end: 20040219
  12. ARANESP [Concomitant]
     Indication: PROPHYLAXIS
     Route: 042
     Dates: start: 20040121, end: 20040211

REACTIONS (5)
  - DRUG TOXICITY [None]
  - DYSPNOEA [None]
  - INTERSTITIAL LUNG DISEASE [None]
  - NEUTROPENIA [None]
  - PNEUMONIA [None]
